FAERS Safety Report 7469297-8 (Version None)
Quarter: 2011Q2

REPORT INFORMATION
  Report Type: 
  Country: None (occurrence: None)
  Receive Date: 20110510
  Receipt Date: 20110502
  Transmission Date: 20111010
  Serious: Yes (Hospitalization, Other)
  Sender: FDA-Public Use
  Company Number: FR-PFIZER INC-2011096184

PATIENT
  Age: 81 Year
  Sex: Female

DRUGS (8)
  1. EQUANIL [Suspect]
     Dosage: 250 MG, 1X/DAY
     Route: 048
     Dates: end: 20100901
  2. XANAX [Suspect]
     Dosage: 0.75 MG, 1X/DAY
     Route: 048
     Dates: end: 20100901
  3. SERTRALINE HYDROCHLORIDE [Suspect]
     Dosage: 100 MG, 1X/DAY
     Route: 048
     Dates: start: 20070101, end: 20100901
  4. ARICEPT [Suspect]
     Indication: DEMENTIA ALZHEIMER'S TYPE
     Dosage: UNKNOWN
     Route: 048
     Dates: start: 20070101, end: 20100901
  5. ZOLPIDEM [Suspect]
     Dosage: 5 MG, 1X/DAY
     Route: 048
     Dates: end: 20100901
  6. ARICEPT [Suspect]
     Dosage: 10 MG, 1X/DAY
     Route: 048
     Dates: start: 20100902, end: 20100901
  7. XANAX [Suspect]
     Dosage: 0.25 MG, 1X/DAY
     Route: 048
     Dates: start: 20100901, end: 20100901
  8. ATHYMIL [Suspect]
     Dosage: 10 MG, 1X/DAY
     Route: 048
     Dates: start: 20091001, end: 20100901

REACTIONS (5)
  - FALL [None]
  - HYPERNATRAEMIA [None]
  - HYDROCEPHALUS [None]
  - CONFUSIONAL STATE [None]
  - MEMORY IMPAIRMENT [None]
